FAERS Safety Report 24354272 (Version 1)
Quarter: 2024Q3

REPORT INFORMATION
  Report Type: Spontaneous
  Country: US (occurrence: None)
  Receive Date: 20240922
  Receipt Date: 20240922
  Transmission Date: 20241017
  Serious: Yes (Hospitalization)
  Sender: Public
  Company Number: None

PATIENT
  Age: 72 Year
  Sex: Female
  Weight: 56.7 kg

DRUGS (3)
  1. DIETARY SUPPLEMENT [Suspect]
     Active Substance: DIETARY SUPPLEMENT
     Indication: Irritable bowel syndrome
     Dosage: 2 DF DOSAGE FORM 3 TIMES A DAY ORAL
     Route: 048
     Dates: start: 20240601, end: 20240703
  2. WORMWOOD [Suspect]
     Active Substance: WORMWOOD
  3. ROSUVASTATIN [Suspect]
     Active Substance: ROSUVASTATIN\ROSUVASTATIN CALCIUM
     Dates: start: 20140701, end: 20240703

REACTIONS (8)
  - Fatigue [None]
  - Decreased appetite [None]
  - Chromaturia [None]
  - Mixed liver injury [None]
  - Portal fibrosis [None]
  - Early satiety [None]
  - Hepatic steatosis [None]
  - Cholelithiasis [None]

NARRATIVE: CASE EVENT DATE: 20240703
